FAERS Safety Report 12873823 (Version 1)
Quarter: 2016Q4

REPORT INFORMATION
  Report Type: Spontaneous
  Country: US (occurrence: US)
  Receive Date: 20161021
  Receipt Date: 20161021
  Transmission Date: 20170207
  Serious: No
  Sender: FDA-Public Use
  Company Number: US-ALLERGAN-1646295

PATIENT
  Age: 71 Year
  Sex: Female

DRUGS (2)
  1. LIPASE 20,000USP;AMYLASE 109,000USP;PROTEASE 68,000USP CAP [Suspect]
     Active Substance: AMYLASE\LIPASE\PROTEASE
     Dosage: 20000 USP, 3-5 TIMES /DAY
     Route: 048
  2. LIPASE 20,000USP;AMYLASE 109,000USP;PROTEASE 68,000USP CAP [Suspect]
     Active Substance: AMYLASE\LIPASE\PROTEASE
     Indication: PANCREATIC INSUFFICIENCY
     Dosage: 20000 USP, 3-5 TIMES /DAY
     Route: 048

REACTIONS (3)
  - Diarrhoea [Recovered/Resolved]
  - Abdominal pain upper [Recovered/Resolved]
  - Flatulence [Recovered/Resolved]

NARRATIVE: CASE EVENT DATE: 20150827
